FAERS Safety Report 13693693 (Version 1)
Quarter: 2017Q2

REPORT INFORMATION
  Report Type: Spontaneous
  Country: CA (occurrence: CA)
  Receive Date: 20170627
  Receipt Date: 20170627
  Transmission Date: 20170830
  Serious: Yes (Other)
  Sender: FDA-Public Use
  Company Number: CA-TEVA-780893ACC

PATIENT
  Age: 6 Year
  Sex: Female
  Weight: 17 kg

DRUGS (7)
  1. MERCAPTOPURINE. [Concomitant]
     Active Substance: MERCAPTOPURINE
  2. VINCRISTINE SULFATE VINCRISTINE SULFATE [Concomitant]
  3. CYTARABINE INJECTION [Concomitant]
     Active Substance: CYTARABINE
  4. METHOTREXATE. [Concomitant]
     Active Substance: METHOTREXATE
  5. DEXAMETHASONE. [Suspect]
     Active Substance: DEXAMETHASONE
     Indication: LEUKAEMIA
     Dosage: 5 MILLIGRAM DAILY;
     Route: 048
  6. L-ASPARAGINASE [Concomitant]
     Active Substance: ASPARAGINASE
  7. DAUNOMYCIN [Concomitant]
     Active Substance: DAUNORUBICIN

REACTIONS (4)
  - Aggression [Recovered/Resolved]
  - Anxiety [Recovered/Resolved]
  - Affective disorder [Recovered/Resolved]
  - Irritability [Recovered/Resolved]
